FAERS Safety Report 7188456-5 (Version None)
Quarter: 2010Q4

REPORT INFORMATION
  Report Type: 
  Country: None (occurrence: None)
  Receive Date: 20101222
  Receipt Date: 20100719
  Transmission Date: 20110411
  Serious: No
  Sender: FDA-Public Use
  Company Number: US-AMGEN-KDL425224

PATIENT

DRUGS (14)
  1. ENBREL [Suspect]
     Indication: PRODUCT USED FOR UNKNOWN INDICATION
     Dosage: 50 MG, QWK
     Route: 058
  2. CYCLOBENZAPRINE HCL [Concomitant]
     Dosage: 10 MG, UNK
  3. LOSARTAN POTASSIUM [Concomitant]
     Dosage: 25 MG, UNK
  4. GLIBENCLAMIDE [Concomitant]
     Dosage: 5 MG, UNK
  5. HYDROXYCHLOROQUINE SULFATE [Concomitant]
     Dosage: 200 MG, UNK
  6. METHOTREXATE [Concomitant]
     Dosage: 2.5 MG, UNK
  7. ATORVASTATIN CALCIUM [Concomitant]
     Dosage: 10 MG, UNK
  8. LEVOTHYROXINE SODIUM [Concomitant]
     Dosage: 125 A?G, UNK
  9. METFORMIN [Concomitant]
     Dosage: 750 MG, UNK
  10. FOLIC ACID [Concomitant]
     Dosage: 1 MG, UNK
  11. OMEPRAZOLE [Concomitant]
     Dosage: 40 MG, UNK
  12. TOPROL-XL [Concomitant]
     Dosage: 25 MG, UNK
  13. AMITRIPTYLINE HCL [Concomitant]
     Dosage: 100 MG, UNK
  14. ASPIRIN [Concomitant]
     Dosage: 81 MG, UNK

REACTIONS (4)
  - CONTUSION [None]
  - ERYTHEMA [None]
  - SCAR [None]
  - SKIN HAEMORRHAGE [None]
